FAERS Safety Report 4384835-X (Version None)
Quarter: 2004Q2

REPORT INFORMATION
  Report Type: 
  Country: None (occurrence: None)
  Receive Date: 20040623
  Receipt Date: 20040609
  Transmission Date: 20050107
  Serious: Yes (Death)
  Sender: FDA-Public Use
  Company Number: 2004S1001693

PATIENT
  Age: 87 Year
  Sex: Female

DRUGS (12)
  1. CLOZAPINE [Suspect]
     Indication: SCHIZOPHRENIA
     Dosage: 25 MG QD ORAL
     Route: 048
     Dates: end: 20040606
  2. PAROXETINE HCL [Concomitant]
  3. TRAZODONE HCL [Concomitant]
  4. LORAZEPAM [Concomitant]
  5. LAMOTRIGINE [Concomitant]
  6. OLANZAPINE [Concomitant]
  7. SENNA [Concomitant]
  8. CALCIUM CARBONATE [Concomitant]
  9. VENLAFAXINE [Concomitant]
  10. DOCUSATE [Concomitant]
  11. BISACODYL [Concomitant]
  12. ACETAMINOPHEN [Concomitant]

REACTIONS (1)
  - DEMENTIA [None]
